FAERS Safety Report 6535024-1 (Version None)
Quarter: 2010Q1

REPORT INFORMATION
  Report Type: 
  Country: None (occurrence: None)
  Receive Date: 20100111
  Receipt Date: 20100111
  Transmission Date: 20100710
  Serious: Yes (Hospitalization, Other)
  Sender: FDA-Public Use
  Company Number: None

PATIENT
  Age: 22 Year
  Sex: Female

DRUGS (1)
  1. SERTRALINE HCL [Suspect]
     Dosage: 25 MG PO DAILY
     Route: 048
     Dates: start: 20090610, end: 20090611

REACTIONS (2)
  - CONVULSION [None]
  - SYNCOPE [None]
